FAERS Safety Report 10017257 (Version 1)
Quarter: 2014Q1

REPORT INFORMATION
  Report Type: Spontaneous
  Country: US (occurrence: US)
  Receive Date: 20140318
  Receipt Date: 20140318
  Transmission Date: 20141002
  Serious: No
  Sender: FDA-Public Use
  Company Number: US-SHIRE-US201400398

PATIENT
  Sex: 0

DRUGS (1)
  1. LIALDA [Suspect]
     Indication: PRODUCT USED FOR UNKNOWN INDICATION
     Dosage: 1.2 G, 4X/DAY:QID
     Route: 048

REACTIONS (3)
  - Inappropriate schedule of drug administration [Unknown]
  - Accidental overdose [Unknown]
  - No adverse event [Unknown]
